FAERS Safety Report 14164626 (Version 1)
Quarter: 2017Q4

REPORT INFORMATION
  Report Type: Spontaneous
  Country: US (occurrence: US)
  Receive Date: 20171107
  Receipt Date: 20171107
  Transmission Date: 20180321
  Serious: No
  Sender: FDA-Public Use
  Company Number: US-PFIZER INC-2017473850

PATIENT
  Age: 75 Year
  Sex: Female
  Weight: 113.38 kg

DRUGS (1)
  1. XELJANZ XR [Suspect]
     Active Substance: TOFACITINIB CITRATE
     Indication: RHEUMATOID ARTHRITIS
     Dosage: 11 MG, DAILY(TAKE ONE TABLET EVERYDAY)
     Route: 048
     Dates: start: 201612, end: 201707

REACTIONS (1)
  - Drug ineffective [Unknown]
